FAERS Safety Report 8623848-6 (Version None)
Quarter: 2012Q3

REPORT INFORMATION
  Report Type: 
  Country: None (occurrence: None)
  Receive Date: 20120827
  Receipt Date: 20120823
  Transmission Date: 20120928
  Serious: Yes (Other)
  Sender: FDA-Public Use
  Company Number: US-FRI-1000026861

PATIENT
  Age: 54 Year
  Sex: Female

DRUGS (7)
  1. VIIBRYD [Suspect]
     Dosage: 20 MG
     Dates: start: 20110901, end: 20110901
  2. VIIBRYD [Suspect]
     Dosage: 10 MG
     Dates: start: 20110901, end: 20110901
  3. HYDROXYZINE [Concomitant]
     Indication: INSOMNIA
     Dosage: 200 MG
  4. VIIBRYD [Suspect]
     Dosage: 40 MG
     Dates: start: 20110901, end: 20110901
  5. VIIBRYD [Suspect]
     Dosage: 40 MG
     Dates: start: 20111001, end: 20111001
  6. STRATTERA [Suspect]
     Indication: ATTENTION DEFICIT/HYPERACTIVITY DISORDER
     Dosage: 10 MG
     Dates: start: 20110901, end: 20110901
  7. DIPHENHYDRAMINE HYDROCHLORIDE [Concomitant]
     Indication: INSOMNIA
     Dosage: 200 MG

REACTIONS (4)
  - AGGRESSION [None]
  - IMPAIRED DRIVING ABILITY [None]
  - IMPULSIVE BEHAVIOUR [None]
  - ANGER [None]
